FAERS Safety Report 8550830-X (Version None)
Quarter: 2012Q3

REPORT INFORMATION
  Report Type: 
  Country: None (occurrence: None)
  Receive Date: 20120730
  Receipt Date: 20120719
  Transmission Date: 20120928
  Serious: Yes (Other)
  Sender: FDA-Public Use
  Company Number: US-ASTRAZENECA-2012SE50744

PATIENT
  Age: 64 Year
  Sex: Female
  Weight: 65.3 kg

DRUGS (5)
  1. NEXIUM [Suspect]
     Indication: GASTROOESOPHAGEAL REFLUX DISEASE
     Route: 048
     Dates: start: 20020101, end: 20110301
  2. NEXIUM [Suspect]
     Route: 048
     Dates: start: 20110701
  3. ATORVASTATIN [Concomitant]
  4. THYROID MEDICATION [Concomitant]
  5. SERTRALINE HYDROCHLORIDE [Concomitant]

REACTIONS (3)
  - LUNG NEOPLASM [None]
  - COUGH [None]
  - INTENTIONAL DRUG MISUSE [None]
